FAERS Safety Report 8941815 (Version 3)
Quarter: 2013Q1

REPORT INFORMATION
  Report Type: Spontaneous
  Country: US (occurrence: US)
  Receive Date: 20121203
  Receipt Date: 20130121
  Transmission Date: 20140127
  Serious: No
  Sender: FDA-Public Use
  Company Number: US-PFIZER INC-2012301939

PATIENT
  Age: 29 Year
  Sex: Female
  Weight: 54.42 kg

DRUGS (7)
  1. CHANTIX [Suspect]
     Indication: SMOKING CESSATION THERAPY
     Dosage: 0.5 MG, 2X/DAY
     Route: 048
     Dates: start: 20120706, end: 20121004
  2. CHANTIX [Suspect]
     Indication: TOBACCO USER
  3. CELEXA [Suspect]
     Indication: DIZZINESS
     Dosage: 0.5MG DAILY
     Route: 048
     Dates: start: 20121114
  4. CELEXA [Suspect]
     Indication: CONFUSIONAL STATE
  5. CELEXA [Suspect]
     Indication: DISTURBANCE IN ATTENTION
  6. CELEXA [Suspect]
     Indication: DISORIENTATION
  7. CELEXA [Suspect]
     Indication: ANXIETY

REACTIONS (12)
  - Mental disorder [Unknown]
  - Withdrawal syndrome [Unknown]
  - Dizziness [Not Recovered/Not Resolved]
  - Confusional state [Not Recovered/Not Resolved]
  - Disorientation [Not Recovered/Not Resolved]
  - Feeling abnormal [Unknown]
  - Anxiety [Not Recovered/Not Resolved]
  - Disturbance in attention [Not Recovered/Not Resolved]
  - Drug ineffective [Unknown]
  - Decreased appetite [Recovered/Resolved]
  - Pruritus [Recovered/Resolved]
  - Stress [Unknown]
